FAERS Safety Report 6033252-5 (Version None)
Quarter: 2009Q1

REPORT INFORMATION
  Report Type: 
  Country: None (occurrence: None)
  Receive Date: 20090107
  Receipt Date: 20081227
  Transmission Date: 20090719
  Serious: Yes (Hospitalization)
  Sender: FDA-Public Use
  Company Number: 233339K08USA

PATIENT
  Age: 40 Year
  Sex: Male

DRUGS (1)
  1. REBIF [Suspect]
     Indication: MULTIPLE SCLEROSIS
     Dosage: 44 MCG, 3 IN 1WEEKS, SUBCUTANEOUS
     Route: 058
     Dates: start: 20050215

REACTIONS (3)
  - GALLBLADDER DISORDER [None]
  - INJECTION SITE INDURATION [None]
  - RASH [None]
